FAERS Safety Report 19162929 (Version 7)
Quarter: 2022Q3

REPORT INFORMATION
  Report Type: Report from Study
  Country: IL (occurrence: IL)
  Receive Date: 20210421
  Receipt Date: 20220826
  Transmission Date: 20221027
  Serious: Yes (Death, Hospitalization, Other)
  Sender: FDA-Public Use
  Company Number: IL-ABBVIE-20K-082-3254849-00

PATIENT
  Age: 54 Year
  Sex: Male
  Weight: 95 kg

DRUGS (24)
  1. VENETOCLAX [Suspect]
     Active Substance: VENETOCLAX
     Indication: Chronic lymphocytic leukaemia
     Dosage: RAMP UP?20 MG, DOSE INCREASE ACCORDING TO VENETOCLAX DOSE TITRATION SCHEME
     Route: 048
     Dates: start: 20191218, end: 20191224
  2. VENETOCLAX [Suspect]
     Active Substance: VENETOCLAX
     Dosage: RAMP UP
     Route: 048
     Dates: start: 20191225, end: 20191231
  3. VENETOCLAX [Suspect]
     Active Substance: VENETOCLAX
     Dosage: RAMP UP
     Route: 048
     Dates: start: 20200101, end: 20200118
  4. VENETOCLAX [Suspect]
     Active Substance: VENETOCLAX
     Dosage: RAMP UP
     Route: 048
     Dates: start: 20200119, end: 20200125
  5. VENETOCLAX [Suspect]
     Active Substance: VENETOCLAX
     Dosage: INTERRUPTION DUE TO AE
     Route: 048
     Dates: start: 20200126, end: 20200421
  6. VENETOCLAX [Suspect]
     Active Substance: VENETOCLAX
     Route: 048
     Dates: start: 20200422, end: 20200422
  7. VENETOCLAX [Suspect]
     Active Substance: VENETOCLAX
     Route: 048
     Dates: start: 20200423, end: 20211227
  8. RITUXIMAB [Suspect]
     Active Substance: RITUXIMAB
     Indication: Chronic lymphocytic leukaemia
     Dosage: CYCLE NUMBER
     Route: 065
     Dates: start: 20200202, end: 20200202
  9. RITUXIMAB [Suspect]
     Active Substance: RITUXIMAB
     Indication: Drug therapy
     Dosage: CYCLE NUMBER 2
     Route: 065
     Dates: start: 20200301, end: 20200301
  10. RITUXIMAB [Suspect]
     Active Substance: RITUXIMAB
     Dosage: CYCLE NUMBER 3
     Route: 065
     Dates: start: 20200329, end: 20200329
  11. RITUXIMAB [Suspect]
     Active Substance: RITUXIMAB
     Dosage: CYCLE 4
     Route: 065
     Dates: start: 20200510, end: 20200510
  12. RITUXIMAB [Suspect]
     Active Substance: RITUXIMAB
     Dosage: CYCLE 5
     Route: 065
     Dates: start: 20200614, end: 20200614
  13. RITUXIMAB [Suspect]
     Active Substance: RITUXIMAB
     Dosage: CYCLE 6
     Route: 065
     Dates: start: 20200719, end: 20200719
  14. ALLOPURINOL [Concomitant]
     Active Substance: ALLOPURINOL
     Indication: Prophylaxis
     Dates: start: 20191118, end: 20200126
  15. FEBUXOSTAT [Concomitant]
     Active Substance: FEBUXOSTAT
     Indication: Prophylaxis
     Dates: start: 20200126
  16. LORATADINE [Concomitant]
     Active Substance: LORATADINE
     Indication: Premedication
     Dates: start: 20200329, end: 20200329
  17. ACETAMINOPHEN [Concomitant]
     Active Substance: ACETAMINOPHEN
     Indication: Premedication
     Dates: start: 20200202, end: 20200202
  18. ACETAMINOPHEN [Concomitant]
     Active Substance: ACETAMINOPHEN
     Dates: start: 20200301, end: 20200301
  19. ACETAMINOPHEN [Concomitant]
     Active Substance: ACETAMINOPHEN
     Dates: start: 20200329, end: 20200329
  20. PROMETHAZINE [Concomitant]
     Active Substance: PROMETHAZINE HYDROCHLORIDE
     Indication: Premedication
     Dates: start: 20200202, end: 20200202
  21. PROMETHAZINE [Concomitant]
     Active Substance: PROMETHAZINE HYDROCHLORIDE
     Dates: start: 20200301, end: 20200301
  22. HYDROCORTISONE [Concomitant]
     Active Substance: HYDROCORTISONE
     Indication: Premedication
     Dates: start: 20200202, end: 20200202
  23. HYDROCORTISONE [Concomitant]
     Active Substance: HYDROCORTISONE
     Dates: start: 20200301, end: 20200301
  24. HYDROCORTISONE [Concomitant]
     Active Substance: HYDROCORTISONE
     Dates: start: 20200329, end: 20200329

REACTIONS (14)
  - Coronavirus infection [Fatal]
  - Neutrophil count decreased [Recovered/Resolved]
  - Hyperuricaemia [Recovered/Resolved]
  - Febrile neutropenia [Recovered/Resolved]
  - Chronic lymphocytic leukaemia [Unknown]
  - Influenza [Recovered/Resolved]
  - Weight decreased [Recovered/Resolved]
  - Neutrophil count decreased [Recovered/Resolved]
  - Neutrophil count decreased [Recovered/Resolved]
  - Neutrophil count decreased [Recovered/Resolved]
  - Neutrophil count decreased [Recovered/Resolved]
  - Hyperuricaemia [Recovered/Resolved]
  - Neutropenia [Recovered/Resolved]
  - Neutropenia [Recovered/Resolved]

NARRATIVE: CASE EVENT DATE: 20191226
